FAERS Safety Report 26028035 (Version 1)
Quarter: 2025Q4

REPORT INFORMATION
  Report Type: Spontaneous
  Country: US (occurrence: None)
  Receive Date: 20251111
  Receipt Date: 20251111
  Transmission Date: 20260117
  Serious: Yes (Hospitalization)
  Sender: FDA-CTU
  Company Number: None

PATIENT
  Sex: Female

DRUGS (2)
  1. TADALAFIL [Suspect]
     Active Substance: TADALAFIL
     Indication: Pulmonary arterial hypertension
     Dosage: 20 MG TWICE A DAY ORAL
     Route: 048
     Dates: start: 20240409
  2. REMODULIN [Suspect]
     Active Substance: TREPROSTINIL

REACTIONS (3)
  - Infection [None]
  - Salivary gland enlargement [None]
  - Oxygen saturation decreased [None]
